FAERS Safety Report 22119814 (Version 1)
Quarter: 2023Q1

REPORT INFORMATION
  Report Type: Spontaneous
  Country: US (occurrence: None)
  Receive Date: 20230321
  Receipt Date: 20230321
  Transmission Date: 20230418
  Serious: No
  Sender: FDA-Public Use
  Company Number: US-ROCHE-3119121

PATIENT
  Sex: Male

DRUGS (1)
  1. ERIVEDGE [Suspect]
     Active Substance: VISMODEGIB
     Indication: Basal cell carcinoma
     Route: 048
     Dates: start: 20220513

REACTIONS (10)
  - Muscle spasms [Unknown]
  - Hypogeusia [Unknown]
  - Abdominal discomfort [Unknown]
  - Vomiting [Unknown]
  - Gastrointestinal pain [Unknown]
  - Fatigue [Unknown]
  - Dysgeusia [Unknown]
  - Hydrophobia [Unknown]
  - Diarrhoea [Unknown]
  - Hyposmia [Unknown]
